FAERS Safety Report 4315786-4 (Version None)
Quarter: 2004Q1

REPORT INFORMATION
  Report Type: 
  Country: None (occurrence: None)
  Receive Date: 20040310
  Receipt Date: 20040227
  Transmission Date: 20041129
  Serious: No
  Sender: FDA-Public Use
  Company Number: 2004SE01112

PATIENT
  Age: 45 Year
  Sex: Female

DRUGS (4)
  1. PULMICORT [Suspect]
     Indication: ASTHMA
     Dosage: 800 UG DAILY IH
     Route: 055
     Dates: end: 20040209
  2. VENTOLIN [Concomitant]
  3. SEREVENT [Concomitant]
  4. PREDNISONE [Concomitant]

REACTIONS (1)
  - ASTHMA [None]
